FAERS Safety Report 6083183-X (Version None)
Quarter: 2009Q1

REPORT INFORMATION
  Report Type: 
  Country: None (occurrence: None)
  Receive Date: 20090213
  Receipt Date: 20090213
  Transmission Date: 20090719
  Serious: Yes (Life-Threatening, Hospitalization)
  Sender: FDA-Public Use
  Company Number: None

PATIENT
  Age: 59 Year
  Sex: Male

DRUGS (1)
  1. HALDOL [Suspect]

REACTIONS (5)
  - HYPERTHERMIA [None]
  - NEUROLEPTIC MALIGNANT SYNDROME [None]
  - RESPIRATORY FAILURE [None]
  - SUPRAVENTRICULAR TACHYCARDIA [None]
  - UNRESPONSIVE TO STIMULI [None]
